FAERS Safety Report 7129065-3 (Version None)
Quarter: 2010Q4

REPORT INFORMATION
  Report Type: 
  Country: None (occurrence: None)
  Receive Date: 20101130
  Receipt Date: 20101122
  Transmission Date: 20110411
  Serious: Yes (Other)
  Sender: FDA-Public Use
  Company Number: DE-B.I. PHARMACEUTICALS,INC./RIDGEFIELD-2010-DE-06448DE

PATIENT
  Age: 49 Year
  Sex: Female
  Weight: 40 kg

DRUGS (2)
  1. ALNA OCAS [Suspect]
     Dosage: 9.6 MG
     Route: 048
  2. BIOLECTRA MAGNESIUM [Suspect]
     Dosage: 20 ANZ
     Route: 048

REACTIONS (3)
  - HYPOTENSION [None]
  - SUICIDE ATTEMPT [None]
  - SYNCOPE [None]
